FAERS Safety Report 16986039 (Version 1)
Quarter: 2019Q4

REPORT INFORMATION
  Report Type: Spontaneous
  Country: US (occurrence: US)
  Receive Date: 20190917
  Receipt Date: 20190917
  Transmission Date: 20200122
  Serious: No
  Sender: FDA-Public Use
  Company Number: None

PATIENT
  Sex: Female
  Weight: 58.51 kg

DRUGS (6)
  1. VITAMINS [Concomitant]
     Active Substance: VITAMINS
  2. METOPROLOL. [Concomitant]
     Active Substance: METOPROLOL
  3. RESTASIS [Suspect]
     Active Substance: CYCLOSPORINE
     Indication: DRY EYE
     Dosage: ?          QUANTITY:1 GTT DROP(S);OTHER FREQUENCY:IN EACH EYE ;?
     Route: 047
     Dates: start: 20190811, end: 20190814
  4. LEVOTHYROXINE. [Concomitant]
     Active Substance: LEVOTHYROXINE
  5. FOSAMAX [Concomitant]
     Active Substance: ALENDRONATE SODIUM
  6. CALCIUM [Concomitant]
     Active Substance: CALCIUM

REACTIONS (2)
  - Cough [None]
  - Chest discomfort [None]
